FAERS Safety Report 16804628 (Version 1)
Quarter: 2019Q3

REPORT INFORMATION
  Report Type: Spontaneous
  Country: IT (occurrence: IT)
  Receive Date: 20190913
  Receipt Date: 20190913
  Transmission Date: 20191005
  Serious: Yes (Death, Other)
  Sender: FDA-Public Use
  Company Number: IT-JAZZ-2019-IT-012534

PATIENT
  Age: 66 Year
  Sex: Female

DRUGS (1)
  1. VYXEOS [Suspect]
     Active Substance: CYTARABINE\DAUNORUBICIN
     Dosage: UNK
     Dates: start: 20190813

REACTIONS (3)
  - Infection [Fatal]
  - Nephropathy [Fatal]
  - Hepatic failure [Fatal]

NARRATIVE: CASE EVENT DATE: 20190814
